FAERS Safety Report 5408813-4 (Version None)
Quarter: 2007Q3

REPORT INFORMATION
  Report Type: 
  Country: None (occurrence: None)
  Receive Date: 20070808
  Receipt Date: 20070727
  Transmission Date: 20080115
  Serious: Yes (Other)
  Sender: FDA-Public Use
  Company Number: US-PFIZER INC-2007063417

PATIENT
  Sex: Female
  Weight: 68.181 kg

DRUGS (1)
  1. CHANTIX [Suspect]
     Indication: SMOKING CESSATION THERAPY

REACTIONS (5)
  - COLD SWEAT [None]
  - GASTRIC ULCER [None]
  - HAEMATOCHEZIA [None]
  - HEADACHE [None]
  - VOMITING [None]
